FAERS Safety Report 8168940-8 (Version None)
Quarter: 2012Q1

REPORT INFORMATION
  Report Type: 
  Country: None (occurrence: None)
  Receive Date: 20120227
  Receipt Date: 20120215
  Transmission Date: 20120608
  Serious: Yes (Hospitalization)
  Sender: FDA-Public Use
  Company Number: US-ELI_LILLY_AND_COMPANY-US201104005837

PATIENT
  Sex: Female

DRUGS (23)
  1. FORTEO [Suspect]
     Dosage: 20 UG, QD
     Route: 065
  2. PRILOSEC [Concomitant]
  3. CRESTOR [Concomitant]
     Dosage: 10 MG, QD
  4. PAMELOR [Concomitant]
  5. FORTEO [Suspect]
     Indication: OSTEOPOROSIS
     Dosage: 20 UG, QD
     Dates: start: 20110412
  6. FORTEO [Suspect]
     Dosage: 20 UG, QD
  7. MOBIC [Concomitant]
     Dosage: 15 MG, QD
  8. ANTIACID [Concomitant]
  9. PERCOCET [Concomitant]
     Indication: PAIN
     Dosage: 1-2 TABLETS 4-6 HOURS
  10. ASPIRIN [Concomitant]
     Dosage: 325 MG, QD
  11. ZOCOR [Concomitant]
  12. FORTEO [Suspect]
     Dosage: 20 UG, QD
     Dates: end: 20110601
  13. OROTIC ACID [Concomitant]
  14. FORTEO [Suspect]
     Dosage: 20 UG, QD
  15. FORTEO [Suspect]
     Dosage: 20 UG, QD
     Dates: end: 20110915
  16. FORTEO [Suspect]
     Dosage: 20 UG, QD
     Route: 065
     Dates: start: 20111214
  17. FERROUS SULFATE TAB [Concomitant]
  18. OMEPRAZOLE [Concomitant]
     Dosage: UNK, QD
  19. VITAMIN B-12 [Concomitant]
  20. TOPAMAX [Concomitant]
     Dosage: 25 MG, QD
  21. CYMBALTA [Suspect]
     Indication: PAIN
     Dosage: UNK, UNKNOWN
     Route: 065
     Dates: start: 20120101
  22. COLACE [Concomitant]
     Dosage: 100 MG, BID
  23. CALCIUM [Concomitant]

REACTIONS (24)
  - OSTEOPOROSIS [None]
  - VULVOVAGINAL PAIN [None]
  - MUSCULOSKELETAL STIFFNESS [None]
  - MOVEMENT DISORDER [None]
  - PAIN [None]
  - BONE PAIN [None]
  - DIZZINESS [None]
  - NAUSEA [None]
  - ARTHROPATHY [None]
  - FLATULENCE [None]
  - MUSCLE SPASMS [None]
  - FEAR [None]
  - MOBILITY DECREASED [None]
  - BLOOD CALCIUM INCREASED [None]
  - FALL [None]
  - VOMITING [None]
  - JOINT SWELLING [None]
  - PAIN IN EXTREMITY [None]
  - SOMNOLENCE [None]
  - ARTHRALGIA [None]
  - HEADACHE [None]
  - MEMORY IMPAIRMENT [None]
  - GAIT DISTURBANCE [None]
  - CONSTIPATION [None]
